FAERS Safety Report 10936049 (Version 4)
Quarter: 2015Q3

REPORT INFORMATION
  Report Type: Report from Study
  Country: US (occurrence: US)
  Receive Date: 20150320
  Receipt Date: 20150807
  Transmission Date: 20151125
  Serious: No
  Sender: FDA-Public Use
  Company Number: US-ABBVIE-15P-163-1359682-00

PATIENT
  Age: 61 Year
  Sex: Female
  Weight: 50.85 kg

DRUGS (8)
  1. METOPROLOL [Concomitant]
     Active Substance: METOPROLOL
     Indication: PALPITATIONS
     Dates: end: 201503
  2. RIBAVIRIN. [Suspect]
     Active Substance: RIBAVIRIN
     Indication: HEPATITIS C
     Route: 048
     Dates: start: 20150228, end: 20150318
  3. METOPROLOL [Concomitant]
     Active Substance: METOPROLOL
     Dates: start: 201503
  4. RIBAVIRIN. [Suspect]
     Active Substance: RIBAVIRIN
     Route: 048
     Dates: start: 201506
  5. MAGNESIUM [Concomitant]
     Active Substance: MAGNESIUM
     Indication: CONSTIPATION
  6. CLARITIN [Concomitant]
     Active Substance: LORATADINE
     Indication: HYPERSENSITIVITY
  7. RANITIDINE [Concomitant]
     Active Substance: RANITIDINE\RANITIDINE HYDROCHLORIDE
     Indication: DYSPEPSIA
     Dates: end: 20150305
  8. VIEKIRA PAK [Suspect]
     Active Substance: DASABUVIR\OMBITASVIR\PARITAPREVIR\RITONAVIR
     Indication: HEPATITIS C
     Dosage: PINK DAILY IN AM/BEIGE TAB BID AM/PM
     Route: 048
     Dates: start: 20150228

REACTIONS (8)
  - Haematocrit decreased [Not Recovered/Not Resolved]
  - Palpitations [Recovering/Resolving]
  - Haemoglobin decreased [Not Recovered/Not Resolved]
  - Dyspepsia [Recovered/Resolved]
  - Red blood cell count decreased [Recovering/Resolving]
  - Hypotension [Not Recovered/Not Resolved]
  - Urinary tract infection [Unknown]
  - Dyspnoea [Not Recovered/Not Resolved]

NARRATIVE: CASE EVENT DATE: 201503
